FAERS Safety Report 10514903 (Version 2)
Quarter: 2014Q4

REPORT INFORMATION
  Report Type: Report from Study
  Country: US (occurrence: US)
  Receive Date: 20141013
  Receipt Date: 20141013
  Transmission Date: 20150528
  Serious: Yes (Disabling, Other)
  Sender: FDA-Public Use
  Company Number: PHEH2014US011021

PATIENT
  Sex: Female
  Weight: 82.99 kg

DRUGS (1)
  1. GILENYA [Suspect]
     Active Substance: FINGOLIMOD HYDROCHLORIDE
     Indication: MULTIPLE SCLEROSIS
     Dosage: 0.5 MG, QD
     Route: 048
     Dates: start: 2012, end: 201409

REACTIONS (5)
  - Depression [Recovering/Resolving]
  - Myofascial pain syndrome [Recovering/Resolving]
  - Syncope [Not Recovered/Not Resolved]
  - Fatigue [Unknown]
  - Hypoaesthesia [Not Recovered/Not Resolved]

NARRATIVE: CASE EVENT DATE: 2012
